FAERS Safety Report 6569521-X (Version None)
Quarter: 2010Q1

REPORT INFORMATION
  Report Type: 
  Country: None (occurrence: None)
  Receive Date: 20100204
  Receipt Date: 20100125
  Transmission Date: 20100710
  Serious: Yes (Other)
  Sender: FDA-Public Use
  Company Number: JP-JNJFOC-20100110330

PATIENT
  Sex: Female
  Weight: 54 kg

DRUGS (5)
  1. DOXORUBICIN HCL [Suspect]
     Indication: OVARIAN CANCER RECURRENT
     Route: 042
     Dates: start: 20090611, end: 20091001
  2. DOXORUBICIN HCL [Suspect]
     Route: 042
     Dates: start: 20090611, end: 20091001
  3. DOXORUBICIN HCL [Suspect]
     Route: 042
     Dates: start: 20090611, end: 20091001
  4. DOXORUBICIN HCL [Suspect]
     Route: 042
     Dates: start: 20090611, end: 20091001
  5. DOXORUBICIN HCL [Suspect]
     Route: 042
     Dates: start: 20090611, end: 20091001

REACTIONS (1)
  - INTERSTITIAL LUNG DISEASE [None]
